FAERS Safety Report 7527527-8 (Version None)
Quarter: 2011Q2

REPORT INFORMATION
  Report Type: 
  Country: None (occurrence: None)
  Receive Date: 20110607
  Receipt Date: 20110525
  Transmission Date: 20111010
  Serious: Yes (Hospitalization)
  Sender: FDA-Public Use
  Company Number: US-JNJFOC-20110512041

PATIENT
  Sex: Male

DRUGS (4)
  1. INVEGA SUSTENNA [Suspect]
     Indication: SCHIZOPHRENIA
     Route: 030
     Dates: start: 20110523
  2. GEODON [Concomitant]
     Route: 065
     Dates: start: 20110523
  3. DIVALPROEX SODIUM [Concomitant]
     Route: 065
     Dates: start: 20110523
  4. FLUVOXAMINE MALEATE [Concomitant]
     Route: 065
     Dates: start: 20110523

REACTIONS (8)
  - EYE IRRITATION [None]
  - PRODUCT QUALITY ISSUE [None]
  - LACRIMATION INCREASED [None]
  - DYSKINESIA [None]
  - EYE MOVEMENT DISORDER [None]
  - HYPOAESTHESIA [None]
  - BLOOD PRESSURE ORTHOSTATIC DECREASED [None]
  - CHEST PAIN [None]
